FAERS Safety Report 5917534-0 (Version None)
Quarter: 2008Q4

REPORT INFORMATION
  Report Type: 
  Country: None (occurrence: None)
  Receive Date: 20081014
  Receipt Date: 20081007
  Transmission Date: 20090506
  Serious: Yes (Hospitalization)
  Sender: FDA-Public Use
  Company Number: FR-AVENTIS-200813553FR

PATIENT
  Age: 77 Year
  Sex: Female

DRUGS (4)
  1. KETEK [Suspect]
     Route: 048
  2. PREVISCAN                          /00789001/ [Suspect]
     Indication: PULMONARY EMBOLISM
     Route: 048
  3. KARDEGIC                           /00002703/ [Suspect]
     Indication: PROPHYLAXIS
     Route: 048
  4. PLAVIX [Concomitant]

REACTIONS (2)
  - DRUG INTERACTION [None]
  - RECTAL HAEMORRHAGE [None]
